FAERS Safety Report 15019319 (Version 1)
Quarter: 2018Q2

REPORT INFORMATION
  Report Type: Report from Study
  Country: IT (occurrence: IT)
  Receive Date: 20180617
  Receipt Date: 20180617
  Transmission Date: 20180711
  Serious: Yes (Hospitalization)
  Sender: FDA-Public Use
  Company Number: IT-ROCHE-2140998

PATIENT
  Age: 84 Year
  Sex: Male

DRUGS (19)
  1. RELVAR ELLIPTA [Concomitant]
     Active Substance: FLUTICASONE FUROATE\VILANTEROL TRIFENATATE
     Route: 065
  2. COUMADIN [Concomitant]
     Active Substance: WARFARIN SODIUM
     Route: 065
  3. APLACTIN [Concomitant]
     Active Substance: PRAVASTATIN SODIUM
     Route: 065
  4. OMEPRAZOLE. [Concomitant]
     Active Substance: OMEPRAZOLE
     Route: 065
  5. ALLOPURINOL. [Concomitant]
     Active Substance: ALLOPURINOL
     Route: 065
  6. CITALOPRAM [Concomitant]
     Active Substance: CITALOPRAM HYDROBROMIDE
     Route: 065
  7. DIAZEPAM. [Suspect]
     Active Substance: DIAZEPAM
     Indication: PSYCHOMOTOR HYPERACTIVITY
     Dosage: UNIT DOSE: 25 [DRP]?DATE OF MOST RECENT DOSE PRIOR TO AE 18/MAY/2018
     Route: 048
     Dates: start: 20180518
  8. INCRUSE ELLIPTA [Concomitant]
     Active Substance: UMECLIDINIUM BROMIDE
     Route: 065
  9. DOBETIN [Concomitant]
     Route: 065
  10. BISOPROLOL HEMIFUMARATE [Concomitant]
     Active Substance: BISOPROLOL FUMARATE
     Route: 065
  11. SERENASE (ITALY) [Suspect]
     Active Substance: HALOPERIDOL
     Indication: PSYCHOMOTOR HYPERACTIVITY
     Dosage: UNIT DOSE: 30 [DRP]?DATE OF MOST RECENT DOSE PRIOR TO AE 17/MAY/2018
     Route: 048
     Dates: start: 20180517
  12. BENSERAZIDE HYDROCHLORIDE/LEVODOPA [Concomitant]
     Active Substance: BENSERAZIDE HYDROCHLORIDE\LEVODOPA
     Route: 065
  13. SODIUM HYDROGEN CARBONATE [Concomitant]
     Active Substance: SODIUM BICARBONATE
     Route: 065
  14. FOLINA (FOLIC ACID) [Concomitant]
     Active Substance: FOLIC ACID
     Route: 065
  15. MEDROL [Concomitant]
     Active Substance: METHYLPREDNISOLONE
     Route: 065
  16. ROCALTROL [Concomitant]
     Active Substance: CALCITRIOL
     Route: 065
  17. LASIX [Concomitant]
     Active Substance: FUROSEMIDE
     Route: 065
  18. NORVASC [Concomitant]
     Active Substance: AMLODIPINE BESYLATE
     Route: 065
  19. DIDROGYL [Concomitant]
     Active Substance: CALCIFEDIOL
     Route: 065

REACTIONS (1)
  - Sopor [Unknown]

NARRATIVE: CASE EVENT DATE: 20180518
